FAERS Safety Report 6383851-6 (Version None)
Quarter: 2009Q3

REPORT INFORMATION
  Report Type: 
  Country: None (occurrence: None)
  Receive Date: 20090929
  Receipt Date: 20090929
  Transmission Date: 20100115
  Serious: Yes (Other)
  Sender: FDA-Public Use
  Company Number: None

PATIENT
  Age: 44 Year
  Sex: Female
  Weight: 74.8435 kg

DRUGS (1)
  1. PREDNISONE TAB [Suspect]
     Indication: DERMATITIS
     Dosage: 3 PILLS FOR 3DAYS EVERY DAY; 1 PILL 3DAYS
     Dates: start: 20090901, end: 20090929

REACTIONS (2)
  - CONTUSION [None]
  - PAIN [None]
